FAERS Safety Report 8874902 (Version 1)
Quarter: 2012Q4

REPORT INFORMATION
  Report Type: 
  Country: US (occurrence: US)
  Receive Date: 20121030
  Receipt Date: 20121030
  Transmission Date: 20130627
  Serious: No
  Sender: FDA-Public Use
  Company Number: US-AMGEN-USASP2012048793

PATIENT
  Sex: Male
  Weight: 92.97 kg

DRUGS (17)
  1. ENBREL [Suspect]
     Indication: PRODUCT USED FOR UNKNOWN INDICATION
     Dosage: 50 mg, qwk
     Route: 058
  2. ONGLYZA [Concomitant]
     Dosage: 5 mg, UNK
  3. ZOCOR [Concomitant]
     Dosage: 20 mg, UNK
  4. TOPAMAX [Concomitant]
     Dosage: 200 mg, UNK
  5. RAMIPRIL [Concomitant]
     Dosage: 10 mg, UNK
  6. METHOTREXATE [Concomitant]
     Dosage: 2.5 mg, UNK
  7. ELMIRON [Concomitant]
     Dosage: 100 mg, UNK
  8. METFORMIN [Concomitant]
     Dosage: 1000 mg, UNK
  9. IMITREX                            /01044801/ [Concomitant]
     Dosage: 100 mg, UNK
  10. VITAMIN D /00107901/ [Concomitant]
     Dosage: 50000 UNK, UNK
  11. VITAMIN C                          /00008001/ [Concomitant]
     Dosage: 500 mg, UNK
  12. CINNAMON                           /01647501/ [Concomitant]
     Dosage: 500 mg, UNK
  13. MAGNESIUM [Concomitant]
     Dosage: 200 mg, UNK
  14. OMEGA 3                            /01334101/ [Concomitant]
     Dosage: 1200 mg, UNK
  15. CAMBIA [Concomitant]
     Dosage: 50 mg, UNK
  16. VITAMIN B6 [Concomitant]
     Dosage: 50 mg, UNK
  17. VITAMIN B 12 [Concomitant]
     Dosage: 250 mug, UNK

REACTIONS (2)
  - Migraine [Unknown]
  - Arthralgia [Unknown]
